FAERS Safety Report 7480602-9 (Version None)
Quarter: 2011Q2

REPORT INFORMATION
  Report Type: 
  Country: None (occurrence: None)
  Receive Date: 20110504
  Receipt Date: 20110419
  Transmission Date: 20111010
  Serious: Yes (Death, Life-Threatening, Hospitalization)
  Sender: FDA-Public Use
  Company Number: 2011075772

PATIENT
  Age: 65 Year
  Sex: Male

DRUGS (9)
  1. APREPITANT [Suspect]
     Dosage: INTRAVENOUS
     Route: 042
     Dates: start: 20110225, end: 20110225
  2. DEXAMETHASONE [Suspect]
     Dosage: ORAL
     Route: 048
     Dates: end: 20110225
  3. TAZOCIN (PIPERACILLIN SODIUM, TAZOBACTAM SODIUM) [Concomitant]
  4. DALTEPARIN SODIUM [Suspect]
     Indication: LUNG NEOPLASM MALIGNANT
     Dates: start: 20101220, end: 20110225
  5. ONDANSETRON [Suspect]
     Dosage: 8 MG, ORAL
     Route: 048
  6. PEMETREXED DISODIUM [Suspect]
     Dosage: INTRAVENOUS
     Route: 042
     Dates: start: 20101221, end: 20110225
  7. CISPLATIN [Suspect]
     Dosage: INTRAVENOUS
     Route: 042
     Dates: start: 20101221, end: 20110225
  8. MIST CONTINUS(MMORPHINE SULPHATE) [Suspect]
     Dosage: 30 MG ORAL
  9. ACETAMINOPHEN [Concomitant]

REACTIONS (6)
  - LARGE INTESTINE PERFORATION [None]
  - LUNG CANCER METASTATIC [None]
  - NAUSEA [None]
  - PERITONITIS [None]
  - ABDOMINAL PAIN [None]
  - CONSTIPATION [None]
